FAERS Safety Report 8574452-X (Version None)
Quarter: 2012Q3

REPORT INFORMATION
  Report Type: 
  Country: None (occurrence: None)
  Receive Date: 20120806
  Receipt Date: 20120515
  Transmission Date: 20120928
  Serious: No
  Sender: FDA-Public Use
  Company Number: US-ABBOTT-12P-163-0936224-00

PATIENT
  Sex: Female
  Weight: 136.2 kg

DRUGS (11)
  1. ARMOR THYROID [Concomitant]
     Indication: AUTOIMMUNE THYROIDITIS
  2. VITAMIN E [Concomitant]
     Indication: SUPPLEMENTATION THERAPY
  3. IRON [Concomitant]
     Indication: PRODUCT USED FOR UNKNOWN INDICATION
  4. DEPAKOTE ER [Suspect]
     Indication: MANIA
     Route: 048
  5. METFORMIN HYDROCHLORIDE [Concomitant]
     Indication: DIABETES MELLITUS
  6. SELENIUM [Concomitant]
     Indication: SUPPLEMENTATION THERAPY
  7. L-CARNITINE [Concomitant]
     Indication: SUPPLEMENTATION THERAPY
  8. COMPLETE OMEGA 3 [Concomitant]
     Indication: SUPPLEMENTATION THERAPY
  9. VITAMIN D [Concomitant]
     Indication: SUPPLEMENTATION THERAPY
  10. CLONEZEPAM [Concomitant]
     Indication: PRODUCT USED FOR UNKNOWN INDICATION
  11. FOLIC ACID [Concomitant]
     Indication: SUPPLEMENTATION THERAPY

REACTIONS (1)
  - BODY TEMPERATURE DECREASED [None]
